FAERS Safety Report 12224067 (Version 1)
Quarter: 2016Q1

REPORT INFORMATION
  Report Type: Other
  Country: US (occurrence: US)
  Receive Date: 20160330
  Receipt Date: 20160330
  Transmission Date: 20160526
  Serious: No
  Sender: FDA-Public Use
  Company Number: US-GUTHY-RENKER LLC-1050002

PATIENT
  Age: 29 Year
  Sex: Female

DRUGS (3)
  1. CALCIUM 500MG [Concomitant]
  2. MULTIVITAMINS [Concomitant]
     Active Substance: VITAMINS
  3. MEANINGFUL BEAUTY DARK SPOT CORRECTING TREATMENT [Suspect]
     Active Substance: HYDROQUINONE
     Indication: ACNE
     Route: 061
     Dates: start: 20160307

REACTIONS (5)
  - Swelling [None]
  - Dyspnoea [None]
  - Burning sensation [None]
  - Angioedema [Recovered/Resolved]
  - Pruritus [None]

NARRATIVE: CASE EVENT DATE: 20160307
